FAERS Safety Report 17307261 (Version 3)
Quarter: 2020Q1

REPORT INFORMATION
  Report Type: Spontaneous
  Country: US (occurrence: US)
  Receive Date: 20200123
  Receipt Date: 20200311
  Transmission Date: 20200409
  Serious: Yes (Other)
  Sender: FDA-Public Use
  Company Number: US-ROCHE-2525557

PATIENT
  Age: 64 Year
  Sex: Female

DRUGS (14)
  1. AMPYRA [Concomitant]
     Active Substance: DALFAMPRIDINE
  2. GABAPENTIN. [Concomitant]
     Active Substance: GABAPENTIN
  3. VESICARE [Concomitant]
     Active Substance: SOLIFENACIN SUCCINATE
  4. EFFEXOR [Concomitant]
     Active Substance: VENLAFAXINE HYDROCHLORIDE
  5. VIT D [Concomitant]
     Active Substance: VITAMIN D NOS
  6. ALLEGRA [Concomitant]
     Active Substance: FEXOFENADINE HYDROCHLORIDE
  7. FLONASE [Concomitant]
     Active Substance: FLUTICASONE PROPIONATE
  8. SYNTHROID [Concomitant]
     Active Substance: LEVOTHYROXINE SODIUM
  9. MAGNESIUM [Concomitant]
     Active Substance: MAGNESIUM
  10. BACLOFEN. [Concomitant]
     Active Substance: BACLOFEN
  11. RECLAST [Concomitant]
     Active Substance: ZOLEDRONIC ACID
  12. OCREVUS [Suspect]
     Active Substance: OCRELIZUMAB
     Indication: MULTIPLE SCLEROSIS
     Route: 065
  13. LOSARTIN [Concomitant]
     Active Substance: LOSARTAN
  14. PROVIGIL [Concomitant]
     Active Substance: MODAFINIL

REACTIONS (1)
  - Colitis [Unknown]

NARRATIVE: CASE EVENT DATE: 201809
